FAERS Safety Report 15081995 (Version 1)
Quarter: 2018Q2

REPORT INFORMATION
  Report Type: Spontaneous
  Country: US (occurrence: US)
  Receive Date: 20180628
  Receipt Date: 20180628
  Transmission Date: 20180711
  Serious: No
  Sender: FDA-Public Use
  Company Number: US-ELI_LILLY_AND_COMPANY-US201806013043

PATIENT
  Sex: Female

DRUGS (1)
  1. TRULICITY [Suspect]
     Active Substance: DULAGLUTIDE
     Indication: PRODUCT USED FOR UNKNOWN INDICATION
     Dosage: UNK, UNKNOWN
     Route: 065

REACTIONS (7)
  - Blood glucose decreased [Unknown]
  - Eructation [Unknown]
  - Flatulence [Unknown]
  - Listless [Unknown]
  - Hyperchlorhydria [Unknown]
  - Nausea [Unknown]
  - Diarrhoea [Unknown]
